FAERS Safety Report 8520891-2 (Version None)
Quarter: 2012Q3

REPORT INFORMATION
  Report Type: 
  Country: None (occurrence: None)
  Receive Date: 20120719
  Receipt Date: 20120710
  Transmission Date: 20120928
  Serious: Yes (Other)
  Sender: FDA-Public Use
  Company Number: US-JNJFOC-20120513076

PATIENT
  Sex: Female
  Weight: 48.08 kg

DRUGS (2)
  1. LEVEMIR [Concomitant]
     Indication: TYPE 2 DIABETES MELLITUS
     Route: 058
     Dates: start: 20110901
  2. ELMIRON [Suspect]
     Indication: CYSTITIS INTERSTITIAL
     Route: 048
     Dates: start: 20120513, end: 20120514

REACTIONS (6)
  - IRRITABILITY [None]
  - BLOOD PRESSURE INCREASED [None]
  - PELVIC PAIN [None]
  - DEPRESSION [None]
  - MENTAL DISORDER [None]
  - HEART RATE INCREASED [None]
